FAERS Safety Report 22247404 (Version 4)
Quarter: 2023Q2

REPORT INFORMATION
  Report Type: Report from Study
  Country: CA (occurrence: CA)
  Receive Date: 20230425
  Receipt Date: 20230529
  Transmission Date: 20230722
  Serious: Yes (Death, Other)
  Sender: FDA-Public Use
  Company Number: CA-002147023-NVSC2023CA071460

PATIENT
  Age: 74 Year
  Sex: Male

DRUGS (3)
  1. MAYZENT [Suspect]
     Active Substance: SIPONIMOD
     Indication: Secondary progressive multiple sclerosis
     Dosage: UNK (TITRATION FOR 5 DAYS)
     Route: 048
     Dates: start: 20230316, end: 20230320
  2. MAYZENT [Suspect]
     Active Substance: SIPONIMOD
     Dosage: 2 MG, QD (MAINTENANCE DOSE)
     Route: 048
     Dates: start: 20230321
  3. UNSPECIFIED INGREDIENT [Concomitant]
     Active Substance: UNSPECIFIED INGREDIENT
     Indication: Hypoglycaemia
     Dosage: UNK
     Route: 065

REACTIONS (4)
  - Illness [Fatal]
  - Hallucination [Unknown]
  - Confusional state [Recovering/Resolving]
  - Feeling abnormal [Unknown]
